FAERS Safety Report 23758972 (Version 1)
Quarter: 2024Q2

REPORT INFORMATION
  Report Type: Spontaneous
  Country: US (occurrence: US)
  Receive Date: 20240418
  Receipt Date: 20240418
  Transmission Date: 20240716
  Serious: Yes (Hospitalization, Other)
  Sender: FDA-Public Use
  Company Number: US-ANIPHARMA-2024-US-021668

PATIENT
  Age: 71 Year
  Sex: Female

DRUGS (3)
  1. AMITRIPTYLINE [Suspect]
     Active Substance: AMITRIPTYLINE
     Indication: Depression
     Dosage: 200 MG TWICE DAILY
  2. CIMETIDINE HYDROCHLORIDE [Suspect]
     Active Substance: CIMETIDINE HYDROCHLORIDE
     Indication: Gastrooesophageal reflux disease
  3. DILTIAZEM [Concomitant]
     Active Substance: DILTIAZEM

REACTIONS (2)
  - Drug interaction [Recovered/Resolved]
  - Tachycardia [Recovered/Resolved]
